FAERS Safety Report 18540466 (Version 4)
Quarter: 2022Q1

REPORT INFORMATION
  Report Type: Spontaneous
  Country: US (occurrence: US)
  Receive Date: 20201124
  Receipt Date: 20220216
  Transmission Date: 20220423
  Serious: Yes (Other)
  Sender: FDA-Public Use
  Company Number: US-PFIZER INC-2020461092

PATIENT
  Age: 65 Year
  Sex: Female

DRUGS (1)
  1. XELJANZ [Suspect]
     Active Substance: TOFACITINIB CITRATE
     Indication: Rheumatoid arthritis
     Dosage: 5 MG

REACTIONS (5)
  - Sepsis [Recovered/Resolved]
  - Blood pressure increased [Recovered/Resolved]
  - Illness [Not Recovered/Not Resolved]
  - Rheumatoid arthritis [Unknown]
  - Malaise [Unknown]

NARRATIVE: CASE EVENT DATE: 20200901
